FAERS Safety Report 7246331-1 (Version None)
Quarter: 2011Q1

REPORT INFORMATION
  Report Type: 
  Country: None (occurrence: None)
  Receive Date: 20110126
  Receipt Date: 20110119
  Transmission Date: 20110831
  Serious: Yes (Hospitalization, Other)
  Sender: FDA-Public Use
  Company Number: BR-PFIZER INC-2011013727

PATIENT
  Age: 49 Year
  Sex: Female

DRUGS (4)
  1. CELEBRA [Suspect]
     Indication: ANTIINFLAMMATORY THERAPY
     Dosage: 200 MG, 1X/DAY
     Route: 048
     Dates: start: 20101201, end: 20101201
  2. BROMAZEPAM [Concomitant]
     Dosage: UNK
     Dates: start: 20010101
  3. CELEBRA [Suspect]
     Dosage: UNK
     Route: 048
     Dates: start: 20101201
  4. LANSOPRAZOLE [Concomitant]
     Indication: GASTRITIS
     Dosage: UNK
     Dates: start: 20010101

REACTIONS (4)
  - ABDOMINAL DISTENSION [None]
  - APPARENT DEATH [None]
  - HYPOTENSION [None]
  - HEADACHE [None]
